FAERS Safety Report 5335079-6 (Version None)
Quarter: 2007Q2

REPORT INFORMATION
  Report Type: 
  Country: None (occurrence: None)
  Receive Date: 20070525
  Receipt Date: 20070523
  Transmission Date: 20071010
  Serious: Yes (Hospitalization)
  Sender: FDA-Public Use
  Company Number: US-BOEHRINGER INGELHEIM PHARMACEUTICALS, INC.-2007-BP-07013BP

PATIENT
  Sex: Female

DRUGS (11)
  1. SPIRIVA [Suspect]
     Indication: CHRONIC OBSTRUCTIVE PULMONARY DISEASE
     Route: 048
     Dates: start: 20040101
  2. LIPITOR [Concomitant]
  3. HEART MEDICATION [Concomitant]
  4. ZOLOFT [Concomitant]
  5. PREDNISONE TAB [Concomitant]
  6. ATIVAN [Concomitant]
  7. ADVAIR DISKUS 100/50 [Concomitant]
  8. IMITREX [Concomitant]
  9. OXYGEN [Concomitant]
  10. NITROGLYCERIN [Concomitant]
  11. ALBUTEROL [Concomitant]

REACTIONS (2)
  - CHRONIC OBSTRUCTIVE PULMONARY DISEASE [None]
  - CONDITION AGGRAVATED [None]
